FAERS Safety Report 17246712 (Version 3)
Quarter: 2020Q1

REPORT INFORMATION
  Report Type: Spontaneous
  Country: US (occurrence: US)
  Receive Date: 20200108
  Receipt Date: 20200311
  Transmission Date: 20200409
  Serious: No
  Sender: FDA-Public Use
  Company Number: US-PFIZER INC-2020004912

PATIENT
  Age: 67 Year
  Sex: Female
  Weight: 69.84 kg

DRUGS (6)
  1. IBRANCE [Suspect]
     Active Substance: PALBOCICLIB
     Indication: BREAST CANCER FEMALE
     Dosage: 100 MG, 1X/DAY
     Dates: start: 201812
  2. MEVACOR [Concomitant]
     Active Substance: LOVASTATIN
     Dosage: 40 MG, UNK
  3. AVALIDE [Concomitant]
     Active Substance: HYDROCHLOROTHIAZIDE\IRBESARTAN
     Dosage: UNK (150-12.5)
  4. FEMARA [Concomitant]
     Active Substance: LETROZOLE
     Dosage: 2.5 MG, UNK
  5. EPIRUBICIN HCL [Concomitant]
     Active Substance: EPIRUBICIN HYDROCHLORIDE
     Dosage: UNK 50MG/25 ML SOLN 100MG/ML
  6. XGEVA [Concomitant]
     Active Substance: DENOSUMAB
     Dosage: UNK (10 MG/ML 4-6 WEEKS)

REACTIONS (2)
  - Taste disorder [Unknown]
  - Fatigue [Unknown]
